FAERS Safety Report 15108014 (Version 2)
Quarter: 2018Q3

REPORT INFORMATION
  Report Type: Report from Study
  Country: RU (occurrence: RU)
  Receive Date: 20180704
  Receipt Date: 20180726
  Transmission Date: 20181010
  Serious: Yes (Hospitalization)
  Sender: FDA-Public Use
  Company Number: RU-ASTRAZENECA-2018SE38836

PATIENT
  Age: 63 Year
  Sex: Female
  Weight: 80 kg

DRUGS (11)
  1. METYPRED [Concomitant]
     Active Substance: METHYLPREDNISOLONE
  2. THROMBO ASS [Suspect]
     Active Substance: ASPIRIN
     Route: 065
  3. METFORMIN [Concomitant]
     Active Substance: METFORMIN HYDROCHLORIDE
  4. SIMVASTATIN. [Concomitant]
     Active Substance: SIMVASTATIN
  5. BETALOC ZOK [Concomitant]
     Active Substance: METOPROLOL SUCCINATE
  6. BRILINTA [Suspect]
     Active Substance: TICAGRELOR
     Indication: MYOCARDIAL INFARCTION
     Route: 048
     Dates: start: 201709
  7. PERINEVA [Concomitant]
     Active Substance: PERINDOPRIL ERBUMINE
  8. OMEZ [Concomitant]
     Active Substance: OMEPRAZOLE
  9. L?THYROXIN [Concomitant]
     Active Substance: LEVOTHYROXINE SODIUM
  10. BRILINTA [Suspect]
     Active Substance: TICAGRELOR
     Indication: MYOCARDIAL INFARCTION
     Route: 048
     Dates: start: 201805
  11. ERYNIT [Concomitant]
     Active Substance: PENTAERYTHRITOL TETRANITRATE
     Dosage: AS REQUIRED

REACTIONS (8)
  - Faeces discoloured [Recovered/Resolved]
  - Nasopharyngitis [Not Recovered/Not Resolved]
  - Intentional product misuse [Not Recovered/Not Resolved]
  - Contusion [Not Recovered/Not Resolved]
  - Diarrhoea [Recovered/Resolved]
  - Chest discomfort [Not Recovered/Not Resolved]
  - Cough [Not Recovered/Not Resolved]
  - Eye haemorrhage [Not Recovered/Not Resolved]

NARRATIVE: CASE EVENT DATE: 201709
